FAERS Safety Report 16485249 (Version 1)
Quarter: 2019Q2

REPORT INFORMATION
  Report Type: Spontaneous
  Country: US (occurrence: US)
  Receive Date: 20190627
  Receipt Date: 20190627
  Transmission Date: 20190711
  Serious: Yes (Hospitalization)
  Sender: FDA-Public Use
  Company Number: US-IBIGEN-2019.06809

PATIENT
  Age: 11 Year
  Sex: Female

DRUGS (6)
  1. FLAGYL [Suspect]
     Active Substance: METRONIDAZOLE\METRONIDAZOLE HYDROCHLORIDE
     Dosage: GIVEN ONCE
  2. LASIX [Concomitant]
     Active Substance: FUROSEMIDE
     Dosage: LASIX ADMINISTRATION WITH A T 1/2  OF 6.5 MINUTES ON THE LEFT AND 17 MINUTES ON THE RIGHT.
  3. AMPICILLIN [Suspect]
     Active Substance: AMPICILLIN
     Dosage: 35 MG/KG OR 2000MG/DOSE EVERY 2 HOURS PER INSTITUTIONAL GUIDELINES.
  4. GENTAMICIN. [Suspect]
     Active Substance: GENTAMICIN
     Dosage: GIVEN ONCE
  5. AMPICILLIN [Suspect]
     Active Substance: AMPICILLIN
  6. CEFAZOLIN [Concomitant]
     Active Substance: CEFAZOLIN
     Route: 042

REACTIONS (6)
  - Haematuria [Recovered/Resolved]
  - Oliguria [Recovered/Resolved]
  - Calculus bladder [Recovered/Resolved]
  - Crystalluria [Recovered/Resolved]
  - Glomerular filtration rate decreased [Recovered/Resolved]
  - Urethral obstruction [Recovered/Resolved]
